FAERS Safety Report 9022315 (Version 5)
Quarter: 2015Q2

REPORT INFORMATION
  Report Type: Report from Study
  Country: MX (occurrence: MX)
  Receive Date: 20130118
  Receipt Date: 20150429
  Transmission Date: 20150821
  Serious: Yes (Death, Other)
  Sender: FDA-Public Use
  Company Number: PHHY2013MX004107

PATIENT
  Age: 80 Year
  Sex: Female

DRUGS (9)
  1. FUROSEMIDE. [Concomitant]
     Active Substance: FUROSEMIDE
     Indication: PRODUCT USED FOR UNKNOWN INDICATION
     Route: 065
  2. ALEVIAN [Concomitant]
     Indication: COLITIS
  3. TENORMIN [Concomitant]
     Active Substance: ATENOLOL
     Indication: HYPERTENSION
  4. ASPIRIN PROTECT [Concomitant]
     Active Substance: ASPIRIN
     Indication: COAGULOPATHY
     Dosage: 1 DF, QD
     Route: 065
     Dates: start: 2006
  5. ALEVIAN [Concomitant]
     Indication: GASTROINTESTINAL DISORDER
     Dosage: 2 DF, QD
     Route: 065
     Dates: start: 201211
  6. TENORMIN [Concomitant]
     Active Substance: ATENOLOL
     Indication: SINUS BRADYCARDIA
     Dosage: 100 MG, QD
     Route: 065
     Dates: start: 201207
  7. CO-DIOVAN [Suspect]
     Active Substance: HYDROCHLOROTHIAZIDE\VALSARTAN
     Indication: HYPERTENSION
     Dosage: 1 DF, (AT MORNING)
     Route: 065
     Dates: start: 201112, end: 201504
  8. PRAVASTATIN [Concomitant]
     Active Substance: PRAVASTATIN\PRAVASTATIN SODIUM
     Indication: ARTERIOSCLEROSIS
     Dosage: 1 DF, QD (IN THE NIGHT)
     Route: 065
     Dates: start: 2010
  9. ELATEC [Concomitant]
     Indication: PERIPHERAL VENOUS DISEASE
     Dosage: 2 DF, UNK
     Route: 065

REACTIONS (21)
  - Metabolic acidosis [Fatal]
  - Cerebral ischaemia [Not Recovered/Not Resolved]
  - Pulmonary hypertension [Unknown]
  - Blood pressure fluctuation [Unknown]
  - Abdominal distension [Unknown]
  - Drug prescribing error [Unknown]
  - Hiatus hernia [Unknown]
  - Acute kidney injury [Fatal]
  - Cardiac failure congestive [Unknown]
  - Fluid retention [Recovered/Resolved]
  - Blood pressure decreased [Unknown]
  - Wrong technique in drug usage process [Unknown]
  - Faecaloma [Not Recovered/Not Resolved]
  - Diverticulum [Not Recovered/Not Resolved]
  - Nervous system disorder [Unknown]
  - Cow^s milk intolerance [Unknown]
  - Diarrhoea [Recovered/Resolved]
  - Epilepsy [Recovered/Resolved]
  - Blood pressure inadequately controlled [Recovered/Resolved]
  - Constipation [Recovered/Resolved]
  - Off label use [Unknown]

NARRATIVE: CASE EVENT DATE: 201211
